FAERS Safety Report 12059109 (Version 4)
Quarter: 2017Q2

REPORT INFORMATION
  Report Type: Report from Study
  Country: US (occurrence: US)
  Receive Date: 20160210
  Receipt Date: 20170517
  Transmission Date: 20170829
  Serious: Yes (Life-Threatening, Hospitalization, Other)
  Sender: FDA-Public Use
  Company Number: PHEH2016US002947

PATIENT
  Sex: Male
  Weight: 78 kg

DRUGS (4)
  1. GABAPENTIN. [Concomitant]
     Active Substance: GABAPENTIN
     Indication: PRODUCT USED FOR UNKNOWN INDICATION
     Dosage: 300 MG, TID
     Route: 048
  2. TRILEPTAL [Concomitant]
     Active Substance: OXCARBAZEPINE
     Indication: PRODUCT USED FOR UNKNOWN INDICATION
     Dosage: 300 MG, TID
     Route: 048
  3. GILENYA [Suspect]
     Active Substance: FINGOLIMOD HYDROCHLORIDE
     Indication: MULTIPLE SCLEROSIS
     Dosage: 0.5 MG, QD
     Route: 048
     Dates: start: 20150929, end: 201512
  4. LIDODERM [Concomitant]
     Active Substance: LIDOCAINE
     Indication: PRODUCT USED FOR UNKNOWN INDICATION
     Dosage: (UPTO 12 HRS)
     Route: 065

REACTIONS (27)
  - Malaise [Recovered/Resolved]
  - Drug ineffective [Unknown]
  - Visual impairment [Unknown]
  - Multiple sclerosis relapse [Unknown]
  - Blindness [Recovered/Resolved]
  - Dysphagia [Recovering/Resolving]
  - Drug intolerance [Recovering/Resolving]
  - Nerve injury [Unknown]
  - Facial pain [Recovering/Resolving]
  - Eating disorder [Recovering/Resolving]
  - Paraesthesia [Unknown]
  - Photophobia [Recovering/Resolving]
  - Paraesthesia [Recovered/Resolved]
  - Insomnia [Recovered/Resolved]
  - Burning sensation [Recovering/Resolving]
  - Loss of consciousness [Recovered/Resolved]
  - Contusion [Recovering/Resolving]
  - Lymphocyte count decreased [Recovering/Resolving]
  - Rash [Recovering/Resolving]
  - Trigeminal neuralgia [Recovering/Resolving]
  - Speech disorder [Recovering/Resolving]
  - Headache [Recovered/Resolved]
  - Anaemia [Recovering/Resolving]
  - Crying [Recovering/Resolving]
  - Neuralgia [Unknown]
  - Apparent death [Unknown]
  - Feeling abnormal [Unknown]
